FAERS Safety Report 6149345-8 (Version None)
Quarter: 2009Q2

REPORT INFORMATION
  Report Type: 
  Country: None (occurrence: None)
  Receive Date: 20090409
  Receipt Date: 20090403
  Transmission Date: 20091009
  Serious: Yes (Death, Life-Threatening, Hospitalization)
  Sender: FDA-Public Use
  Company Number: ZM-AVENTIS-200912908GDDC

PATIENT
  Age: 35 Year
  Sex: Male
  Weight: 54.6 kg

DRUGS (5)
  1. RIFAMPICIN [Suspect]
     Indication: TUBERCULOSIS
     Dates: start: 20090109, end: 20090320
  2. CODE UNBROKEN [Suspect]
     Indication: TUBERCULOSIS
     Dates: start: 20090109, end: 20090320
  3. PYRAZINAMIDE [Suspect]
     Indication: TUBERCULOSIS
     Dates: start: 20090109, end: 20090320
  4. CODE UNBROKEN [Suspect]
     Dates: start: 20090109, end: 20090320
  5. CODE UNBROKEN [Suspect]
     Dates: start: 20090109, end: 20090320

REACTIONS (2)
  - GUILLAIN-BARRE SYNDROME [None]
  - PNEUMONIA ASPIRATION [None]
